FAERS Safety Report 11064520 (Version 8)
Quarter: 2015Q3

REPORT INFORMATION
  Report Type: Spontaneous
  Country: US (occurrence: US)
  Receive Date: 20150424
  Receipt Date: 20150923
  Transmission Date: 20151125
  Serious: Yes (Death)
  Sender: FDA-Public Use
  Company Number: US-PFIZER INC-2015140968

PATIENT
  Age: 69 Year
  Sex: Male
  Weight: 63 kg

DRUGS (4)
  1. SUTENT [Suspect]
     Active Substance: SUNITINIB MALATE
     Dosage: 50 MG, 1X/DAY CYCLIC, 2WEEKS ON AND 1 WEEK OFF
     Route: 048
     Dates: start: 20150422
  2. SUTENT [Suspect]
     Active Substance: SUNITINIB MALATE
     Indication: RENAL CANCER STAGE IV
     Dosage: 50 MG,1X/DAY CYCLIC, FOR 28 DAYS ON/14 DAYS OFF
     Route: 048
     Dates: start: 20150319
  3. SUTENT [Suspect]
     Active Substance: SUNITINIB MALATE
     Dosage: 50 MG, (DAILY FOR ONE WEEK ON / ONE WEEK OFF)
     Dates: start: 20150324, end: 20150701
  4. AMIODARONE [Concomitant]
     Active Substance: AMIODARONE
     Dosage: UNK

REACTIONS (7)
  - Malaise [Unknown]
  - Weight decreased [Unknown]
  - Nausea [Unknown]
  - Death [Fatal]
  - Vomiting [Unknown]
  - Heart rate increased [Unknown]
  - Hypophagia [Unknown]

NARRATIVE: CASE EVENT DATE: 20150410
